FAERS Safety Report 7974884-4 (Version None)
Quarter: 2011Q4

REPORT INFORMATION
  Report Type: 
  Country: None (occurrence: None)
  Receive Date: 20111213
  Receipt Date: 20111207
  Transmission Date: 20120403
  Serious: No
  Sender: FDA-Public Use
  Company Number: US-B.I. PHARMACEUTICALS,INC./RIDGEFIELD-2011-BP-27580BP

PATIENT
  Sex: Female

DRUGS (11)
  1. PRADAXA [Suspect]
     Indication: ATRIAL FIBRILLATION
     Dosage: 300 MG
     Route: 048
     Dates: start: 20110822
  2. VITAMIN B-12 [Concomitant]
     Indication: SUPPLEMENTATION THERAPY
  3. TAMBOCOR [Concomitant]
     Indication: ATRIAL FIBRILLATION
     Route: 048
  4. MEDICATION NOT FURTHER SPECIFIED [Concomitant]
     Indication: FIBROMYALGIA
  5. IRON W/ VITAMIN C [Concomitant]
     Indication: SUPPLEMENTATION THERAPY
     Route: 048
  6. SYNTHROID [Concomitant]
     Indication: HYPOTHYROIDISM
     Dosage: 112 MG
     Route: 048
  7. LOPRESSOR [Concomitant]
     Indication: RENAL FAILURE
     Route: 048
  8. MEDICATION NOT FURTHER SPECIFIED [Concomitant]
     Indication: ASTHMA
  9. MEDICATION NOT FURTHER SPECIFIED [Concomitant]
     Indication: OSTEOARTHRITIS
  10. MEDICATION NOT FURTHER SPECIFIED [Concomitant]
     Indication: RENAL DISORDER
  11. ZESTRIL [Concomitant]
     Indication: HYPERTENSION
     Route: 048

REACTIONS (5)
  - MYALGIA [None]
  - FALL [None]
  - ARTHRALGIA [None]
  - FATIGUE [None]
  - HAEMATOMA [None]
